FAERS Safety Report 9502832 (Version 1)
Quarter: 2013Q1

REPORT INFORMATION
  Report Type: Spontaneous
  Country: US (occurrence: None)
  Receive Date: 20130107
  Receipt Date: 20130107
  Transmission Date: 20140127
  Serious: No
  Sender: FDA-Public Use
  Company Number: PHEH2012US018647

PATIENT
  Age: 39 Year
  Sex: Male

DRUGS (1)
  1. GILENYA [Suspect]
     Indication: MULTIPLE SCLEROSIS
     Route: 048
     Dates: start: 20120824

REACTIONS (8)
  - Pain of skin [None]
  - Paraesthesia [None]
  - Influenza [None]
  - Headache [None]
  - Throat irritation [None]
  - Pharyngeal oedema [None]
  - Pain [None]
  - Body temperature increased [None]
